FAERS Safety Report 6913400-2 (Version None)
Quarter: 2010Q3

REPORT INFORMATION
  Report Type: 
  Country: None (occurrence: None)
  Receive Date: 20100809
  Receipt Date: 20100726
  Transmission Date: 20110219
  Serious: Yes (Hospitalization, Other)
  Sender: FDA-Public Use
  Company Number: US-ELI_LILLY_AND_COMPANY-US201007007177

PATIENT
  Sex: Female

DRUGS (9)
  1. FORTEO [Suspect]
     Indication: OSTEOPOROSIS
     Dosage: 20 UG, DAILY (1/D)
  2. ULTRAM [Concomitant]
  3. FLEXERIL [Concomitant]
  4. LIPITOR [Concomitant]
  5. LISINOPRIL [Concomitant]
  6. VITAMIN D [Concomitant]
  7. OMEPRAZOLE [Concomitant]
  8. TESSALON [Concomitant]
  9. XANAX [Concomitant]

REACTIONS (5)
  - CONTUSION [None]
  - FALL [None]
  - FEMUR FRACTURE [None]
  - LIMB INJURY [None]
  - VOMITING [None]
